FAERS Safety Report 5389080-7 (Version None)
Quarter: 2007Q3

REPORT INFORMATION
  Report Type: 
  Country: None (occurrence: None)
  Receive Date: 20070717
  Receipt Date: 20070704
  Transmission Date: 20080115
  Serious: No
  Sender: FDA-Public Use
  Company Number: NL-ELI_LILLY_AND_COMPANY-NL200707001069

PATIENT
  Age: 55 Year
  Sex: Female

DRUGS (16)
  1. ZYPREXA [Suspect]
     Dosage: 10 MG, 3/D
  2. ZUCLOPENTHIXOL [Concomitant]
  3. PANTOZOL [Concomitant]
  4. ASCAL [Concomitant]
  5. DARBEPOETIN ALFA [Concomitant]
  6. AMIODARONE HCL [Concomitant]
  7. FUROSEMIDE [Concomitant]
  8. INSULINE [Concomitant]
  9. THIAMINE [Concomitant]
  10. CISORDINOL /00075802/ [Concomitant]
  11. LORAZEPAM [Concomitant]
  12. CLONAZEPAM [Concomitant]
  13. METOPROLOL SUCCINATE [Concomitant]
  14. PERINDOPRIL [Concomitant]
  15. FENTANYL [Concomitant]
  16. NADROPARIN [Concomitant]

REACTIONS (2)
  - LEUKOPENIA [None]
  - OVERDOSE [None]
